FAERS Safety Report 7395864-6 (Version None)
Quarter: 2011Q2

REPORT INFORMATION
  Report Type: 
  Country: None (occurrence: None)
  Receive Date: 20110405
  Receipt Date: 20110329
  Transmission Date: 20111010
  Serious: Yes (Other)
  Sender: FDA-Public Use
  Company Number: US-BRISTOL-MYERS SQUIBB COMPANY-15641889

PATIENT
  Age: 86 Year
  Sex: Female
  Weight: 68 kg

DRUGS (8)
  1. LEVOTHYROXINE [Concomitant]
     Dosage: TABS
     Route: 048
  2. VITAMIN B-12 [Concomitant]
     Dosage: INJECTION
  3. DIGOXIN TABS [Concomitant]
  4. COUMADIN [Suspect]
     Indication: THROMBOSIS
     Dosage: 5MG 1 TABS 3 DAYS PER WK,2.5MG 4 DAYS PER WK
     Dates: start: 20110222
  5. PRISTIQ [Interacting]
     Dosage: RECEIVING FOR 3 YEARS
  6. VANCOMYCIN [Concomitant]
  7. CARDIZEM CD [Concomitant]
     Route: 048
  8. DYAZIDE [Concomitant]
     Dosage: 1 DF:37.5MG/25 MG

REACTIONS (4)
  - DRUG INTERACTION [None]
  - BALANCE DISORDER [None]
  - ASTHENIA [None]
  - LOSS OF CONSCIOUSNESS [None]
